FAERS Safety Report 8418642-5 (Version None)
Quarter: 2012Q2

REPORT INFORMATION
  Report Type: 
  Country: None (occurrence: None)
  Receive Date: 20120607
  Receipt Date: 20120530
  Transmission Date: 20120825
  Serious: Yes (Life-Threatening, Hospitalization, Disabling)
  Sender: FDA-Public Use
  Company Number: FI-ELI_LILLY_AND_COMPANY-FI201205010141

PATIENT
  Sex: Male

DRUGS (10)
  1. PREDNISOLONE [Concomitant]
     Dosage: 7.5 MG, QD
     Route: 048
  2. ARAVA [Concomitant]
     Dosage: 20 MG, QD
     Route: 048
  3. FOLIC ACID [Concomitant]
     Dosage: UNK, UNKNOWN
     Route: 065
  4. ORLOC [Concomitant]
     Dosage: 5 MG, QD
     Route: 048
  5. ZOLT [Concomitant]
     Dosage: 15 MG, QD
     Route: 048
  6. CELEBREX [Concomitant]
     Dosage: 200 MG, QD
     Route: 048
  7. TERIPARATIDE [Suspect]
     Indication: OSTEOPOROSIS
     Dosage: 20 UG, QD
     Route: 058
     Dates: start: 20100301, end: 20120329
  8. NALTREXONE HYDROCHLORIDE [Concomitant]
     Dosage: 15 MG, WEEKLY (1/W)
     Route: 048
  9. CALCIUM CARBONATE [Concomitant]
     Dosage: 500 MG, QD
     Route: 048
  10. WARFARIN SODIUM [Concomitant]
     Dosage: 5 MG, OTHER
     Route: 048

REACTIONS (1)
  - FEMUR FRACTURE [None]
